FAERS Safety Report 5097840-5 (Version None)
Quarter: 2006Q3

REPORT INFORMATION
  Report Type: 
  Country: None (occurrence: None)
  Receive Date: 20060905
  Receipt Date: 20060830
  Transmission Date: 20061208
  Serious: Yes (Disabling)
  Sender: FDA-Public Use
  Company Number: 2006S1000176

PATIENT
  Age: 1 Day
  Sex: Male

DRUGS (9)
  1. INOMAX [Suspect]
     Indication: LUNG DISORDER
     Dosage: 5 PPM; INH_GAS; INH
     Route: 055
     Dates: start: 20060828
  2. INOMAX [Suspect]
     Indication: PROPHYLAXIS
     Dosage: 5 PPM; INH_GAS; INH
     Route: 055
     Dates: start: 20060828
  3. BENZYLPENICILLIN (BENZYLPENICILLIN) [Concomitant]
  4. GENTAMICIN [Concomitant]
  5. DOPAMINE HCL [Concomitant]
  6. INSULIN (INSULIN) [Concomitant]
  7. METRONIDAZOLE [Concomitant]
  8. CUROSURF (CUROSURF) [Concomitant]
  9. MORPHINE [Concomitant]

REACTIONS (11)
  - ACIDOSIS [None]
  - ATELECTASIS NEONATAL [None]
  - BRADYCARDIA NEONATAL [None]
  - CEREBRAL VENTRICLE DILATATION [None]
  - CONDITION AGGRAVATED [None]
  - GENERALISED OEDEMA [None]
  - HAEMORRHAGE INTRACRANIAL [None]
  - HYPERGLYCAEMIA [None]
  - INTRAVENTRICULAR HAEMORRHAGE NEONATAL [None]
  - LUNG CONSOLIDATION [None]
  - NEONATAL DISORDER [None]
